FAERS Safety Report 18505679 (Version 7)
Quarter: 2022Q3

REPORT INFORMATION
  Report Type: Spontaneous
  Country: JP (occurrence: JP)
  Receive Date: 20201116
  Receipt Date: 20220713
  Transmission Date: 20221026
  Serious: Yes (Death, Hospitalization, Other)
  Sender: FDA-Public Use
  Company Number: JP-GSKNCCC-CASE-01080776_AE-36651

PATIENT

DRUGS (6)
  1. REQUIP [Suspect]
     Active Substance: ROPINIROLE HYDROCHLORIDE
     Indication: Parkinson^s disease
     Dosage: 8 MG, QD
     Route: 048
     Dates: end: 20201111
  2. REQUIP [Suspect]
     Active Substance: ROPINIROLE HYDROCHLORIDE
     Indication: Parkinson^s disease
     Dosage: 1 DF, TID
     Route: 050
     Dates: start: 20201112, end: 20201124
  3. AMLODIPINE BESYLATE [Concomitant]
     Active Substance: AMLODIPINE BESYLATE
     Indication: Hypertension
     Dosage: 2.5 MG
     Route: 048
  4. DISTIGMINE BROMIDE [Concomitant]
     Active Substance: DISTIGMINE BROMIDE
     Indication: Dysuria
     Dosage: 5 MG
     Route: 048
  5. CARBIDOPA\LEVODOPA [Concomitant]
     Active Substance: CARBIDOPA\LEVODOPA
     Indication: Parkinson^s disease
     Dosage: UNK UNK, TID
     Route: 048
  6. AMANTADINE HYDROCHLORIDE [Concomitant]
     Active Substance: AMANTADINE HYDROCHLORIDE
     Indication: Parkinson^s disease
     Dosage: UNK UNK, TID
     Route: 048

REACTIONS (5)
  - Pneumonia [Fatal]
  - Dysphagia [Fatal]
  - Decreased appetite [Fatal]
  - Parkinson^s disease [Fatal]
  - Product use issue [Unknown]

NARRATIVE: CASE EVENT DATE: 20201020
